FAERS Safety Report 5734405-3 (Version None)
Quarter: 2008Q2

REPORT INFORMATION
  Report Type: 
  Country: None (occurrence: None)
  Receive Date: 20080508
  Receipt Date: 20080429
  Transmission Date: 20081010
  Serious: Yes (Death)
  Sender: FDA-Public Use
  Company Number: B0518963A

PATIENT

DRUGS (12)
  1. MELPHALAN (FORMULATION UNKNOWN) (GENERIC) (MELPHALAN) [Suspect]
     Indication: BONE MARROW TRANSPLANT
     Dosage: 50 MG/M2 / INTRAVENOUS
     Route: 042
  2. CARBOPLATIN [Suspect]
     Indication: BONE MARROW TRANSPLANT
     Dosage: 300 MG/M2 / INTRAVENOUS
     Route: 042
  3. ETOPOSIDE [Suspect]
     Indication: BONE MARROW TRANSPLANT
     Dosage: 200 MG/M2 / INTRAVENOUS
     Route: 042
  4. CYCLOPHOSPHAMIDE [Suspect]
     Indication: BONE MARROW TRANSPLANT
     Dosage: 950 MG/M2 / INTRAVENOUS
     Route: 042
  5. DEXAMETHASONE TAB [Concomitant]
  6. SODIUM CHLORIDE [Concomitant]
  7. ONDANSETRON [Concomitant]
  8. CALCIUM CARBONATE [Concomitant]
  9. DIPHENHYDRAMINE HCL [Concomitant]
  10. CIMETIDINE [Concomitant]
  11. AMIFOSTINE [Concomitant]
  12. GRANULOCYTE COL. STIM. FACT [Concomitant]

REACTIONS (3)
  - MULTI-ORGAN FAILURE [None]
  - RENAL FAILURE [None]
  - SEPSIS [None]
